FAERS Safety Report 9988797 (Version 1)
Quarter: 2013Q4

REPORT INFORMATION
  Report Type: Spontaneous
  Country: US (occurrence: None)
  Receive Date: 20131011
  Receipt Date: 20131011
  Transmission Date: 20140711
  Serious: Yes (Life-Threatening, Hospitalization, Other)
  Sender: FDA-Public Use
  Company Number: ADR-2010-9833

PATIENT
  Age: 60 Year
  Sex: Male

DRUGS (4)
  1. BACLOFEN [Suspect]
     Indication: MUSCLE SPASTICITY
  2. MORPHINE [Suspect]
  3. BUPIVACAINE [Suspect]
  4. CLONIDINE [Suspect]

REACTIONS (5)
  - Respiratory arrest [None]
  - Device failure [None]
  - Overdose [None]
  - Respiratory failure [None]
  - Pain [None]
